FAERS Safety Report 14403616 (Version 2)
Quarter: 2018Q1

REPORT INFORMATION
  Report Type: Spontaneous
  Country: US (occurrence: US)
  Receive Date: 20180117
  Receipt Date: 20180216
  Transmission Date: 20180509
  Serious: Yes (Hospitalization)
  Sender: FDA-Public Use
  Company Number: US-SA-2018SA011714

PATIENT
  Age: 65 Year
  Sex: Female

DRUGS (2)
  1. LANTUS SOLOSTAR [Suspect]
     Active Substance: INSULIN GLARGINE
     Indication: TYPE 1 DIABETES MELLITUS
     Dosage: DOSE:36 UNIT(S)
     Route: 051
     Dates: start: 20171126
  2. SOLOSTAR [Suspect]
     Active Substance: DEVICE
     Indication: TYPE 1 DIABETES MELLITUS
     Dates: start: 20171126

REACTIONS (10)
  - Myocardial infarction [Unknown]
  - Hyperglycaemia [Unknown]
  - Hypoglycaemia [Unknown]
  - Visual impairment [Unknown]
  - Hyperhidrosis [Unknown]
  - Application site haemorrhage [Unknown]
  - Device use issue [Unknown]
  - Product use issue [Unknown]
  - Coma [Unknown]
  - Feeling cold [Unknown]

NARRATIVE: CASE EVENT DATE: 201711
